FAERS Safety Report 6326482-6 (Version None)
Quarter: 2009Q3

REPORT INFORMATION
  Report Type: 
  Country: None (occurrence: None)
  Receive Date: 20090825
  Receipt Date: 20070518
  Transmission Date: 20100115
  Serious: Yes (Hospitalization, Other)
  Sender: FDA-Public Use
  Company Number: US-ASTRAZENECA-2006UW23033

PATIENT
  Age: 57 Year
  Sex: Male
  Weight: 128.1 kg

DRUGS (27)
  1. SEROQUEL [Suspect]
     Indication: SCHIZOPHRENIA
     Dosage: 200 MG - 800 MG
     Route: 048
     Dates: start: 20040621
  2. SEROQUEL [Suspect]
     Indication: DEPRESSION
     Dosage: 200 MG - 800 MG
     Route: 048
     Dates: start: 20040621
  3. SEROQUEL [Suspect]
     Route: 048
     Dates: start: 20040621
  4. SEROQUEL [Suspect]
     Route: 048
     Dates: start: 20040621
  5. SEROQUEL [Suspect]
     Route: 048
  6. SEROQUEL [Suspect]
     Route: 048
  7. SEROQUEL [Suspect]
     Route: 048
  8. SEROQUEL [Suspect]
     Route: 048
  9. SEROQUEL [Suspect]
     Route: 048
  10. SEROQUEL [Suspect]
     Route: 048
  11. SEROQUEL [Suspect]
     Route: 048
  12. SEROQUEL [Suspect]
     Route: 048
  13. SEROQUEL [Suspect]
     Route: 048
     Dates: end: 20061204
  14. SEROQUEL [Suspect]
     Route: 048
     Dates: end: 20061204
  15. ABILIFY [Concomitant]
  16. GEODON [Concomitant]
  17. HALDOL [Concomitant]
     Route: 048
     Dates: start: 20041119
  18. RISPERDAL [Concomitant]
  19. THORAZINE [Concomitant]
  20. ZYPREXA [Concomitant]
  21. REMERON [Concomitant]
     Route: 048
     Dates: start: 20030913
  22. LOTENSIN [Concomitant]
     Route: 048
     Dates: start: 20030814
  23. CLONIDINE [Concomitant]
     Route: 048
     Dates: start: 20030814
  24. PAXIL [Concomitant]
     Indication: DEPRESSION
     Dosage: 12.5 MG - 37.5 MG
     Dates: start: 20040616, end: 20041101
  25. ZOLOFT [Concomitant]
     Indication: DEPRESSION
     Dosage: 50 MG - 100 MG
     Dates: start: 20041119
  26. VALIUM [Concomitant]
     Dosage: 10 MG -40 MG
     Route: 048
     Dates: start: 20040412, end: 20041119
  27. WELLBUTRIN SR [Concomitant]
     Dosage: TWICE A DAY
     Dates: start: 20040621

REACTIONS (6)
  - DIABETES MELLITUS [None]
  - DIABETIC COMA [None]
  - INSULIN-REQUIRING TYPE 2 DIABETES MELLITUS [None]
  - MULTIPLE INJURIES [None]
  - NEUROPATHY PERIPHERAL [None]
  - TYPE 1 DIABETES MELLITUS [None]
